FAERS Safety Report 11412368 (Version 2)
Quarter: 2015Q4

REPORT INFORMATION
  Report Type: Spontaneous
  Country: US (occurrence: US)
  Receive Date: 20150824
  Receipt Date: 20151013
  Transmission Date: 20160304
  Serious: No
  Sender: FDA-Public Use
  Company Number: US-JNJFOC-20150811950

PATIENT
  Age: 59 Year
  Sex: Male
  Weight: 77.11 kg

DRUGS (2)
  1. MENS ROGAINE EXTRA STRENGTH [Suspect]
     Active Substance: MINOXIDIL
     Route: 061
  2. MENS ROGAINE EXTRA STRENGTH [Suspect]
     Active Substance: MINOXIDIL
     Indication: ALOPECIA
     Dosage: 1.6 OR 1.7 ML , 95% USE 2X PER DAY 5% 1 TIME PER DAY
     Route: 061
     Dates: end: 201508

REACTIONS (3)
  - Dandruff [Recovered/Resolved]
  - Application site pruritus [Recovered/Resolved]
  - Overdose [Recovered/Resolved]
